FAERS Safety Report 25472886 (Version 1)
Quarter: 2025Q2

REPORT INFORMATION
  Report Type: Spontaneous
  Country: US (occurrence: US)
  Receive Date: 20250624
  Receipt Date: 20250624
  Transmission Date: 20250717
  Serious: Yes (Hospitalization)
  Sender: ROCHE
  Company Number: US-ROCHE-10000319553

PATIENT
  Age: 13 Year
  Sex: Male
  Weight: 29.48 kg

DRUGS (2)
  1. EVRYSDI [Suspect]
     Active Substance: RISDIPLAM
     Indication: Spinal muscular atrophy
     Dosage: ADMINISTERED IN G-TUBE
     Route: 050
     Dates: start: 2019
  2. CIPROFLOXACIN [Concomitant]
     Active Substance: CIPROFLOXACIN

REACTIONS (1)
  - Pseudomonal sepsis [Unknown]

NARRATIVE: CASE EVENT DATE: 20250111
